FAERS Safety Report 8920211 (Version 1)
Quarter: 2012Q4

REPORT INFORMATION
  Report Type: 
  Country: VE (occurrence: VE)
  Receive Date: 20121121
  Receipt Date: 20121121
  Transmission Date: 20130627
  Serious: No
  Sender: FDA-Public Use
  Company Number: VE-SANOFI-AVENTIS-2012SA082218

PATIENT
  Age: 27 Year
  Weight: 59 kg

DRUGS (1)
  1. ARAVA [Suspect]
     Indication: RHEUMATOID ARTHRITIS
     Route: 048
     Dates: start: 2008, end: 201204

REACTIONS (1)
  - Exposure during pregnancy [Unknown]
